FAERS Safety Report 25180028 (Version 1)
Quarter: 2025Q2

REPORT INFORMATION
  Report Type: Spontaneous
  Country: US (occurrence: None)
  Receive Date: 20250409
  Receipt Date: 20250409
  Transmission Date: 20250716
  Serious: Yes (Hospitalization)
  Sender: FDA-CTU
  Company Number: None

PATIENT
  Age: 76 Year
  Sex: Male

DRUGS (3)
  1. CEFADROXIL [Suspect]
     Active Substance: CEFADROXIL
     Indication: Infection prophylaxis
  2. LOSARTAN [Suspect]
     Active Substance: LOSARTAN
  3. PREDNISONE [Suspect]
     Active Substance: PREDNISONE

REACTIONS (10)
  - Drug reaction with eosinophilia and systemic symptoms [None]
  - Lip swelling [None]
  - Asthenia [None]
  - Hypophagia [None]
  - Stomatitis [None]
  - Oral pain [None]
  - Cheilitis [None]
  - Hyponatraemia [None]
  - Hyperkalaemia [None]
  - Adrenal insufficiency [None]

NARRATIVE: CASE EVENT DATE: 20250318
